FAERS Safety Report 9921692 (Version 1)
Quarter: 2014Q1

REPORT INFORMATION
  Report Type: Not Available
  Country: US (occurrence: US)
  Receive Date: 20140225
  Receipt Date: 20140225
  Transmission Date: 20141002
  Serious: Yes (Hospitalization)
  Sender: FDA-Public Use
  Company Number: US-VIROPHARMA INCORPORATED-20140210CINRY5788

PATIENT
  Age: 0 Day
  Sex: Male
  Weight: 1.57 kg

DRUGS (2)
  1. CINRYZE (C1 ESTERASE INHIBITOR (HUMAN)) [Suspect]
     Indication: HEREDITARY ANGIOEDEMA
     Route: 064
     Dates: start: 201208, end: 20130815
  2. CINRYZE (C1 ESTERASE INHIBITOR (HUMAN)) [Suspect]
     Indication: PROPHYLAXIS

REACTIONS (2)
  - Premature baby [Recovered/Resolved]
  - Foetal exposure during pregnancy [Recovered/Resolved]
